FAERS Safety Report 15232310 (Version 1)
Quarter: 2018Q3

REPORT INFORMATION
  Report Type: Spontaneous
  Country: PL (occurrence: PL)
  Receive Date: 20180802
  Receipt Date: 20180802
  Transmission Date: 20181010
  Serious: Yes (Other)
  Sender: FDA-Public Use
  Company Number: PHHY2018PL062938

PATIENT
  Age: 69 Year
  Sex: Female
  Weight: 79 kg

DRUGS (1)
  1. CARBOPLATIN. [Suspect]
     Active Substance: CARBOPLATIN
     Indication: PRODUCT USED FOR UNKNOWN INDICATION
     Dosage: 350 OT, UNK
     Route: 042

REACTIONS (4)
  - Pulse absent [Unknown]
  - Respiratory disorder [Unknown]
  - Loss of consciousness [Unknown]
  - Malaise [Unknown]

NARRATIVE: CASE EVENT DATE: 20170525
